FAERS Safety Report 4852188-6 (Version None)
Quarter: 2005Q4

REPORT INFORMATION
  Report Type: 
  Country: None (occurrence: None)
  Receive Date: 20051213
  Receipt Date: 20051206
  Transmission Date: 20060501
  Serious: Yes (Other)
  Sender: FDA-Public Use
  Company Number: CA-GLAXOSMITHKLINE-A0585041A

PATIENT
  Sex: Female

DRUGS (1)
  1. PAXIL [Suspect]
     Indication: DRUG USE FOR UNKNOWN INDICATION
     Route: 048

REACTIONS (10)
  - CONVULSION [None]
  - CRYING [None]
  - EYE PAIN [None]
  - HYPERHIDROSIS [None]
  - INSOMNIA [None]
  - MOOD SWINGS [None]
  - PALPITATIONS [None]
  - PANIC ATTACK [None]
  - ROAD TRAFFIC ACCIDENT [None]
  - SUICIDE ATTEMPT [None]
